FAERS Safety Report 7272525-5 (Version None)
Quarter: 2011Q1

REPORT INFORMATION
  Report Type: 
  Country: None (occurrence: None)
  Receive Date: 20110203
  Receipt Date: 20110131
  Transmission Date: 20110831
  Serious: Yes (Other)
  Sender: FDA-Public Use
  Company Number: US-JNJFOC-20101105101

PATIENT
  Sex: Female
  Weight: 95.26 kg

DRUGS (3)
  1. SYNTHROID [Concomitant]
     Indication: HYPOTHYROIDISM
  2. NUCYNTA [Suspect]
     Indication: PROCEDURAL PAIN
     Dosage: 50 MG EVERY 4-6 HOURS.
     Route: 048
  3. CEFTIN [Concomitant]
     Indication: ANTIBIOTIC PROPHYLAXIS

REACTIONS (1)
  - URINARY RETENTION [None]
